FAERS Safety Report 5847485-1 (Version None)
Quarter: 2008Q3

REPORT INFORMATION
  Report Type: 
  Country: None (occurrence: None)
  Receive Date: 20080814
  Receipt Date: 20080723
  Transmission Date: 20090109
  Serious: Yes (Other)
  Sender: FDA-Public Use
  Company Number: DSU-2008-01111

PATIENT
  Age: 70 Year
  Sex: Male
  Weight: 73.4827 kg

DRUGS (3)
  1. BENICAR [Suspect]
     Indication: HYPERTENSION
     Dosage: 20 MG (20 MG, QD), PER ORAL; ONE-QUARTER OR ONE-HALF TABLET QD), PER ORAL
     Route: 048
     Dates: start: 20070101, end: 20070101
  2. BENICAR [Suspect]
     Indication: HYPERTENSION
     Dosage: 20 MG (20 MG, QD), PER ORAL; ONE-QUARTER OR ONE-HALF TABLET QD), PER ORAL
     Route: 048
     Dates: end: 20070101
  3. ASPIRIN [Concomitant]

REACTIONS (7)
  - ALCOHOL USE [None]
  - CONVULSION [None]
  - DIZZINESS [None]
  - HYPOTENSION [None]
  - INCORRECT DOSE ADMINISTERED [None]
  - SYNCOPE [None]
  - TREATMENT NONCOMPLIANCE [None]
